FAERS Safety Report 7715627-9 (Version None)
Quarter: 2011Q3

REPORT INFORMATION
  Report Type: 
  Country: None (occurrence: None)
  Receive Date: 20110829
  Receipt Date: 20110824
  Transmission Date: 20111222
  Serious: Yes (Other)
  Sender: FDA-Public Use
  Company Number: GB-ROCHE-729704

PATIENT
  Sex: Female

DRUGS (2)
  1. TOCILIZUMAB [Suspect]
     Route: 065
     Dates: start: 20090801
  2. TOCILIZUMAB [Suspect]
     Route: 065
     Dates: start: 20090901

REACTIONS (4)
  - RENAL IMPAIRMENT [None]
  - CARDIAC FAILURE [None]
  - HYPERTENSION [None]
  - RENAL AMYLOIDOSIS [None]
